FAERS Safety Report 5990775-2 (Version None)
Quarter: 2008Q4

REPORT INFORMATION
  Report Type: 
  Country: None (occurrence: None)
  Receive Date: 20081209
  Receipt Date: 20081124
  Transmission Date: 20090506
  Serious: Yes (Hospitalization)
  Sender: FDA-Public Use
  Company Number: KV200800639

PATIENT
  Age: 38 Year
  Sex: Male
  Weight: 74.8 kg

DRUGS (8)
  1. MORPHINE SULFATE [Suspect]
     Indication: BACK PAIN
     Dosage: 30 MG, TID, ORAL
     Route: 048
     Dates: start: 20080601, end: 20080901
  2. MORPHINE SULFATE [Suspect]
     Indication: NECK PAIN
     Dosage: 30 MG, TID, ORAL
     Route: 048
     Dates: start: 20080601, end: 20080901
  3. MORPHINE SULFATE [Suspect]
     Indication: BACK PAIN
     Dosage: 15MG, Q4 TO Q6 H, ORAL
     Route: 048
     Dates: start: 20080601, end: 20080901
  4. MORPHINE SULFATE [Suspect]
     Indication: NECK PAIN
     Dosage: 15MG, Q4 TO Q6 H, ORAL
     Route: 048
     Dates: start: 20080601, end: 20080901
  5. VALIUM [Concomitant]
  6. GABAPENTIN [Concomitant]
  7. THYROID THERAPY [Concomitant]
  8. ANTIEMETICS AND ANTINAUSEANTS [Concomitant]

REACTIONS (2)
  - MIGRAINE [None]
  - PRODUCT QUALITY ISSUE [None]
